FAERS Safety Report 5571568-7 (Version None)
Quarter: 2007Q4

REPORT INFORMATION
  Report Type: 
  Country: None (occurrence: None)
  Receive Date: 20071221
  Receipt Date: 20071217
  Transmission Date: 20080405
  Serious: Yes (Hospitalization)
  Sender: FDA-Public Use
  Company Number: US-ELI_LILLY_AND_COMPANY-US200712003390

PATIENT
  Sex: Male

DRUGS (5)
  1. CYMBALTA [Suspect]
     Route: 048
  2. FLEXERIL [Concomitant]
  3. IBUPROFEN [Concomitant]
  4. PHENERGAN HCL [Concomitant]
  5. TOPAMAX [Concomitant]

REACTIONS (2)
  - DRUG SCREEN POSITIVE [None]
  - HOSPITALISATION [None]
